FAERS Safety Report 12755172 (Version 2)
Quarter: 2016Q3

REPORT INFORMATION
  Report Type: Spontaneous
  Country: US (occurrence: US)
  Receive Date: 20160916
  Receipt Date: 20160916
  Transmission Date: 20161109
  Serious: Yes (Death, Hospitalization)
  Sender: FDA-Public Use
  Company Number: US-SA-2016SA137470

PATIENT
  Age: 90 Year
  Sex: Female
  Weight: 54.43 kg

DRUGS (7)
  1. CARVEDILOL. [Concomitant]
     Active Substance: CARVEDILOL
     Indication: HYPERTENSION
     Dates: end: 20160707
  2. VITAMIN D [Concomitant]
     Active Substance: CHOLECALCIFEROL
     Indication: VITAMIN D DEFICIENCY
     Dates: start: 2015, end: 20160708
  3. RENVELA [Suspect]
     Active Substance: SEVELAMER CARBONATE
     Indication: DIALYSIS
     Route: 065
     Dates: start: 20160601
  4. FUROSEMIDE. [Concomitant]
     Active Substance: FUROSEMIDE
     Indication: FLUID RETENTION
     Dates: end: 20160707
  5. RENVELA [Suspect]
     Active Substance: SEVELAMER CARBONATE
     Indication: DIALYSIS
     Route: 048
     Dates: start: 20151002, end: 20160323
  6. ISOSORBIDE MONONITRATE. [Concomitant]
     Active Substance: ISOSORBIDE MONONITRATE
     Indication: ANGINA PECTORIS
     Dates: end: 20160707
  7. CLOPIDOGREL [Concomitant]
     Active Substance: CLOPIDOGREL BISULFATE
     Indication: CARDIAC FAILURE CONGESTIVE
     Dates: end: 20160707

REACTIONS (3)
  - Haematochezia [Fatal]
  - Intestinal haemorrhage [Fatal]
  - Cardiac arrest [Fatal]

NARRATIVE: CASE EVENT DATE: 20160310
